FAERS Safety Report 4284808-1 (Version None)
Quarter: 2004Q1

REPORT INFORMATION
  Report Type: 
  Country: None (occurrence: None)
  Receive Date: 20040203
  Receipt Date: 20040112
  Transmission Date: 20041129
  Serious: Yes (Death)
  Sender: FDA-Public Use
  Company Number: 7139

PATIENT
  Age: 47 Year
  Sex: Male

DRUGS (5)
  1. CYTARABINE [Suspect]
     Indication: ACUTE MYELOID LEUKAEMIA
     Dosage: 2000 MG/M2 PER_CYCLE
  2. FLUDARABINE PHOSPHATE [Suspect]
     Indication: ACUTE MYELOID LEUKAEMIA
     Dosage: 30 MG/M2 PER_CYCLE
  3. FILGRASTIM [Suspect]
     Indication: ACUTE MYELOID LEUKAEMIA
  4. ACYCLOVIR [Suspect]
     Dosage: 200 MG TID
  5. CO-TRIMOXAZOLE [Suspect]

REACTIONS (11)
  - ACINETOBACTER INFECTION [None]
  - AMNESIA [None]
  - COMPLEX PARTIAL SEIZURES [None]
  - DEPRESSED LEVEL OF CONSCIOUSNESS [None]
  - ENCEPHALITIS HERPES [None]
  - ENCEPHALITIS VIRAL [None]
  - ENTEROBACTER INFECTION [None]
  - NEUTROPENIC SEPSIS [None]
  - PYREXIA [None]
  - SEPTIC SHOCK [None]
  - VASCULITIS [None]
